FAERS Safety Report 18426465 (Version 1)
Quarter: 2020Q4

REPORT INFORMATION
  Report Type: Spontaneous
  Country: US (occurrence: US)
  Receive Date: 20201026
  Receipt Date: 20201026
  Transmission Date: 20210114
  Serious: No
  Sender: FDA-Public Use
  Company Number: None

PATIENT
  Age: 57 Year
  Sex: Female
  Weight: 54 kg

DRUGS (9)
  1. HUMALOG [Concomitant]
     Active Substance: INSULIN LISPRO
  2. FAMOTIDINE. [Concomitant]
     Active Substance: FAMOTIDINE
  3. LISINOPRIL. [Concomitant]
     Active Substance: LISINOPRIL
  4. HUMALOG [Concomitant]
     Active Substance: INSULIN LISPRO
  5. LEVOTHYROXINE. [Concomitant]
     Active Substance: LEVOTHYROXINE
  6. VITAMIN D [Concomitant]
     Active Substance: VITAMIN D NOS
  7. ASPIRIN (LOW DOSE) [Concomitant]
  8. LEXISCAN [Suspect]
     Active Substance: REGADENOSON
     Indication: CHEST DISCOMFORT
     Route: 042
  9. CALCIUM [Concomitant]
     Active Substance: CALCIUM

REACTIONS (5)
  - Blood pressure decreased [None]
  - Obstructive airways disorder [None]
  - Blood glucose abnormal [None]
  - Dyspnoea [None]
  - Asthma [None]

NARRATIVE: CASE EVENT DATE: 20200710
